FAERS Safety Report 22669399 (Version 4)
Quarter: 2024Q3

REPORT INFORMATION
  Report Type: Spontaneous
  Country: IT (occurrence: IT)
  Receive Date: 20230704
  Receipt Date: 20240712
  Transmission Date: 20241017
  Serious: Yes (Hospitalization, Other)
  Sender: PFIZER
  Company Number: None

PATIENT
  Age: 49 Year
  Sex: Male

DRUGS (8)
  1. DOXORUBICIN HYDROCHLORIDE [Suspect]
     Active Substance: DOXORUBICIN HYDROCHLORIDE
     Indication: Hodgkin^s disease stage IV
     Dosage: (DAY 1)
     Dates: start: 20211118, end: 20211118
  2. DOXORUBICIN HYDROCHLORIDE [Suspect]
     Active Substance: DOXORUBICIN HYDROCHLORIDE
     Dosage: (DAY 15)
     Dates: start: 20211202, end: 20211202
  3. BRENTUXIMAB VEDOTIN [Suspect]
     Active Substance: BRENTUXIMAB VEDOTIN
     Indication: Hodgkin^s disease stage IV
     Dosage: (DAY 1)
     Dates: start: 20211118, end: 20211118
  4. BRENTUXIMAB VEDOTIN [Suspect]
     Active Substance: BRENTUXIMAB VEDOTIN
     Dosage: (DAY 15)
     Dates: start: 20211202, end: 20211202
  5. DACARBAZINE [Suspect]
     Active Substance: DACARBAZINE
     Indication: Hodgkin^s disease stage IV
     Dosage: (DAY 1)
     Dates: start: 20211118, end: 20211118
  6. DACARBAZINE [Suspect]
     Active Substance: DACARBAZINE
     Dosage: (DAY 15)
     Dates: start: 20211202, end: 20211202
  7. VINBLASTINE [Suspect]
     Active Substance: VINBLASTINE
     Indication: Hodgkin^s disease stage IV
     Dosage: (DAY1)
     Dates: start: 20211118, end: 20211118
  8. VINBLASTINE [Suspect]
     Active Substance: VINBLASTINE
     Dosage: (DAY 15)
     Dates: start: 20211202, end: 20211202

REACTIONS (2)
  - Apoptotic colonopathy [Recovering/Resolving]
  - Intestinal obstruction [Recovering/Resolving]

NARRATIVE: CASE EVENT DATE: 20211213
